FAERS Safety Report 9912262 (Version 4)
Quarter: 2014Q1

REPORT INFORMATION
  Report Type: Report from Study
  Country: AU (occurrence: AU)
  Receive Date: 20140220
  Receipt Date: 20140310
  Transmission Date: 20141002
  Serious: Yes (Hospitalization, Other)
  Sender: FDA-Public Use
  Company Number: AU-ROCHE-1316986

PATIENT
  Age: 76 Year
  Sex: Female

DRUGS (1)
  1. ACTEMRA [Suspect]
     Indication: RHEUMATOID ARTHRITIS
     Route: 042
     Dates: start: 20091221, end: 20140228

REACTIONS (3)
  - Fall [Unknown]
  - Limb injury [Recovering/Resolving]
  - Weight bearing difficulty [Unknown]
